FAERS Safety Report 5652187-0 (Version None)
Quarter: 2008Q1

REPORT INFORMATION
  Report Type: 
  Country: None (occurrence: None)
  Receive Date: 20080304
  Receipt Date: 20080218
  Transmission Date: 20080703
  Serious: Yes (Death)
  Sender: FDA-Public Use
  Company Number: TNZDE200800023

PATIENT
  Age: 77 Year
  Sex: Female

DRUGS (25)
  1. INNOHEP [Suspect]
     Indication: THROMBOSIS PROPHYLAXIS
     Dosage: 0.4 ML, DAILY, SUBCUTANEOUS
     Route: 058
     Dates: start: 20030409, end: 20030416
  2. CARBAMAZEPINE [Suspect]
     Indication: GRAND MAL CONVULSION
     Dosage: 600 MG, ORAL
     Route: 048
     Dates: start: 20030301, end: 20030416
  3. PREDNISONE TAB [Suspect]
     Indication: RASH
     Dosage: 30 MG, ORAL
     Route: 048
     Dates: start: 20030220, end: 20030411
  4. DIGOXIN [Suspect]
     Indication: SUPRAVENTRICULAR TACHYCARDIA
     Dosage: 0.2 MG, ORAL
     Route: 048
     Dates: start: 20030314, end: 20030330
  5. DIGOXIN [Suspect]
     Indication: SUPRAVENTRICULAR TACHYCARDIA
     Dosage: 0.2 MG, ORAL
     Route: 048
     Dates: start: 20030401, end: 20030416
  6. THEOPHYLLINE [Suspect]
     Indication: ASTHMA
     Dosage: 400 MG, ORAL
     Route: 048
     Dates: start: 20030314, end: 20030508
  7. DIGITOXIN TAB [Suspect]
     Indication: SUPRAVENTRICULAR TACHYCARDIA
     Dosage: ORAL
     Route: 048
     Dates: start: 20030304
  8. PANTOPRAZOLE SODIUM [Suspect]
     Indication: PROPHYLAXIS
     Dosage: 20 MG
     Dates: start: 20030314
  9. DYTIDE [Suspect]
     Indication: HYPERTENSION
     Dosage: 2 DOSAGE FORMS, ORAL
     Route: 048
     Dates: start: 20030314, end: 20030508
  10. CLONAZEPAM [Suspect]
     Indication: GRAND MAL CONVULSION
     Dosage: ORAL
     Route: 048
     Dates: start: 20030331, end: 20030409
  11. DIAZEPAM [Suspect]
     Indication: GRAND MAL CONVULSION
     Dosage: ORAL
     Route: 048
     Dates: start: 20030331, end: 20030409
  12. CLEMASTINE FUMARATE [Suspect]
     Indication: RASH
     Dosage: 2 DOSAGES FORMS, ORAL
     Route: 048
     Dates: start: 20030403, end: 20030409
  13. METOCLOPRAMIDE HCL [Suspect]
     Indication: NAUSEA
     Dosage: ORAL
     Route: 048
     Dates: start: 20030409, end: 20030409
  14. FEXOFENADINE HCL [Suspect]
     Indication: RASH
     Dosage: 180 MG, ORAL
     Route: 048
     Dates: start: 20030409, end: 20030410
  15. REPELTIN (ALIMEMAZINE TARTRATE) [Suspect]
     Indication: PRURITUS
     Dosage: 1 DOSAGE FORMS, ORAL
     Route: 048
     Dates: start: 20030410, end: 20030416
  16. BERODUAL (DUOVENT) [Suspect]
     Indication: CHRONIC OBSTRUCTIVE PULMONARY DISEASE
     Dosage: 1 DOSAGE FORMS, INHALATION
     Route: 055
     Dates: start: 20030412, end: 20030416
  17. PULMICORT [Concomitant]
  18. SEREVENT [Concomitant]
  19. EUNERPAN (MELPERONE HYDROCHLORIDE) [Concomitant]
  20. ISOPTIN [Concomitant]
  21. MARCUMAR [Concomitant]
  22. PLAVIX [Concomitant]
  23. CORNEREGEL (DEXPANTHENOL) [Concomitant]
  24. DEPAKENE [Concomitant]
  25. FRISIUM (CLOBAZAM) [Concomitant]

REACTIONS (1)
  - STEVENS-JOHNSON SYNDROME [None]
